FAERS Safety Report 5856523-1 (Version None)
Quarter: 2008Q3

REPORT INFORMATION
  Report Type: 
  Country: None (occurrence: None)
  Receive Date: 20080825
  Receipt Date: 20080722
  Transmission Date: 20090109
  Serious: No
  Sender: FDA-Public Use
  Company Number: A0738879A

PATIENT
  Age: 27 Year
  Sex: Male

DRUGS (3)
  1. VERAMYST [Suspect]
     Dosage: 2SPR PER DAY
     Route: 045
     Dates: start: 20080421
  2. SINGULAIR [Concomitant]
  3. MAGNESIUM SULFATE [Concomitant]

REACTIONS (5)
  - DYSPHAGIA [None]
  - IMPAIRED HEALING [None]
  - OROPHARYNGEAL PAIN [None]
  - PHARYNGEAL ULCERATION [None]
  - TONSILLAR DISORDER [None]
